FAERS Safety Report 12549234 (Version 1)
Quarter: 2016Q3

REPORT INFORMATION
  Report Type: Spontaneous
  Country: CN (occurrence: CN)
  Receive Date: 20160712
  Receipt Date: 20160712
  Transmission Date: 20161109
  Serious: Yes (Hospitalization)
  Sender: FDA-Public Use
  Company Number: CN-BAYER-2016-135033

PATIENT
  Age: 53 Year
  Sex: Male
  Weight: 65 kg

DRUGS (1)
  1. IOPROMIDE [Suspect]
     Active Substance: IOPROMIDE
     Indication: PHYSICAL EXAMINATION
     Dosage: 92 ML, ONCE
     Route: 042
     Dates: start: 20160106, end: 20160106

REACTIONS (2)
  - Hypoaesthesia [Recovering/Resolving]
  - Anaphylactic shock [Recovering/Resolving]

NARRATIVE: CASE EVENT DATE: 20160106
